FAERS Safety Report 4783639-3 (Version None)
Quarter: 2005Q3

REPORT INFORMATION
  Report Type: 
  Country: None (occurrence: None)
  Receive Date: 20050928
  Receipt Date: 20050908
  Transmission Date: 20060218
  Serious: Yes (Hospitalization)
  Sender: FDA-Public Use
  Company Number: GBS050918385

PATIENT
  Age: 29 Year
  Weight: 60 kg

DRUGS (1)
  1. PROZAC [Suspect]
     Indication: DEPRESSION
     Dosage: 15 MG
     Dates: start: 20050704, end: 20050804

REACTIONS (5)
  - DIARRHOEA [None]
  - FACE OEDEMA [None]
  - SYNOVITIS [None]
  - URTICARIA [None]
  - VOMITING [None]
